FAERS Safety Report 5208698-5 (Version None)
Quarter: 2007Q1

REPORT INFORMATION
  Report Type: 
  Country: None (occurrence: None)
  Receive Date: 20070116
  Receipt Date: 20070105
  Transmission Date: 20070707
  Serious: Yes (Hospitalization)
  Sender: FDA-Public Use
  Company Number: PHRM2007FR00469

PATIENT
  Age: 70 Year
  Sex: Female

DRUGS (3)
  1. LYTOS [Suspect]
     Route: 048
     Dates: start: 20040831, end: 20050329
  2. DEXAMETHASONE [Concomitant]
  3. AREDIA [Suspect]
     Indication: MULTIPLE MYELOMA
     Dates: start: 20000930, end: 20040831

REACTIONS (10)
  - APICAL GRANULOMA [None]
  - BONE DISORDER [None]
  - GINGIVITIS [None]
  - OSTEITIS [None]
  - OSTEOLYSIS [None]
  - OSTEONECROSIS [None]
  - OSTEOSCLEROSIS [None]
  - PAIN IN JAW [None]
  - SINUS HEADACHE [None]
  - SINUSITIS [None]
